FAERS Safety Report 4336067-9 (Version None)
Quarter: 2004Q1

REPORT INFORMATION
  Report Type: 
  Country: None (occurrence: None)
  Receive Date: 20040329
  Receipt Date: 20040105
  Transmission Date: 20041129
  Serious: No
  Sender: FDA-Public Use
  Company Number: USA040155739

PATIENT
  Age: 13 Year
  Sex: Male
  Weight: 123 kg

DRUGS (3)
  1. STRATTERA [Suspect]
     Indication: ATTENTION DEFICIT/HYPERACTIVITY DISORDER
     Dosage: 50 MG/DAY
     Dates: start: 20040101
  2. CONCERTRA (METHYLPHENIDATE HYDROCHLORIDE) [Concomitant]
  3. DETROL - SLOW RELEASE (TOLTERODINE L-TARTRATE) [Concomitant]

REACTIONS (6)
  - BLOOD URINE [None]
  - DIARRHOEA [None]
  - DYSURIA [None]
  - POLLAKIURIA [None]
  - POLYDIPSIA [None]
  - RESIDUAL URINE VOLUME [None]
